FAERS Safety Report 4840287-4 (Version None)
Quarter: 2005Q4

REPORT INFORMATION
  Report Type: 
  Country: None (occurrence: None)
  Receive Date: 20051031
  Receipt Date: 20050705
  Transmission Date: 20060501
  Serious: No
  Sender: FDA-Public Use
  Company Number: 200515654US

PATIENT
  Age: 53 Year
  Sex: Female
  Weight: 68.1 kg

DRUGS (6)
  1. KETEK [Suspect]
     Indication: SINUSITIS
     Dosage: 400 MG PO
     Route: 048
  2. LIPITOR [Concomitant]
  3. ALTACE [Concomitant]
  4. OMALIZUMAB (XOLAIR   /AUS/) [Concomitant]
  5. PREDNISONE [Concomitant]
  6. PULMICORT [Concomitant]

REACTIONS (3)
  - BODY TEMPERATURE [None]
  - LETHARGY [None]
  - SOMNOLENCE [None]
